FAERS Safety Report 6782231-9 (Version None)
Quarter: 2010Q2

REPORT INFORMATION
  Report Type: 
  Country: None (occurrence: None)
  Receive Date: 20100618
  Receipt Date: 20100618
  Transmission Date: 20101027
  Serious: Yes (Other)
  Sender: FDA-Public Use
  Company Number: None

PATIENT
  Sex: Female
  Weight: 89.8122 kg

DRUGS (1)
  1. CYCLOBENAZPRINE [Suspect]
     Indication: MUSCLE SPASMS
     Dosage: 10MG 2 TABLETS AT HS PO
     Route: 048
     Dates: start: 20100316, end: 20100416

REACTIONS (2)
  - PRODUCT SUBSTITUTION ISSUE [None]
  - TREATMENT FAILURE [None]
